FAERS Safety Report 9439941 (Version 1)
Quarter: 2013Q3

REPORT INFORMATION
  Report Type: Spontaneous
  Country: BR (occurrence: BR)
  Receive Date: 20130805
  Receipt Date: 20130805
  Transmission Date: 20140515
  Serious: Yes (Hospitalization)
  Sender: FDA-Public Use
  Company Number: BR-NOVOPROD-384129

PATIENT
  Sex: Male
  Weight: 66 kg

DRUGS (4)
  1. NOVOLIN R [Suspect]
     Indication: TYPE 2 DIABETES MELLITUS
     Dosage: UNKNOWN
     Route: 058
     Dates: start: 2010
  2. NOVOLIN N [Suspect]
     Indication: TYPE 2 DIABETES MELLITUS
     Dosage: 30 IU DAILY
     Route: 058
     Dates: start: 2010
  3. DAONIL [Concomitant]
     Indication: TYPE 2 DIABETES MELLITUS
     Dosage: 2 TAB
     Route: 048
  4. METFORMIN [Concomitant]
     Indication: TYPE 2 DIABETES MELLITUS
     Dosage: 2 TAB
     Route: 048

REACTIONS (5)
  - Limb injury [Recovered/Resolved]
  - Diabetes mellitus inadequate control [Unknown]
  - Drug dispensing error [Unknown]
  - Wrong drug administered [Unknown]
  - Treatment noncompliance [Unknown]
